FAERS Safety Report 4661993-0 (Version None)
Quarter: 2005Q2

REPORT INFORMATION
  Report Type: 
  Country: None (occurrence: None)
  Receive Date: 20050512
  Receipt Date: 20050427
  Transmission Date: 20051028
  Serious: Yes (Hospitalization)
  Sender: FDA-Public Use
  Company Number: US015163

PATIENT
  Sex: Male

DRUGS (2)
  1. ACTIQ [Suspect]
     Indication: BACK PAIN
     Dosage: 400 UG QID BUCCAL
     Route: 002
     Dates: start: 20030401, end: 20050413
  2. DURAGESIC-100 [Concomitant]

REACTIONS (4)
  - DEPRESSION [None]
  - DRUG DEPENDENCE [None]
  - SUICIDAL IDEATION [None]
  - TREATMENT NONCOMPLIANCE [None]
